FAERS Safety Report 10241377 (Version 1)
Quarter: 2014Q2

REPORT INFORMATION
  Report Type: Spontaneous
  Country: US (occurrence: US)
  Receive Date: 20140617
  Receipt Date: 20140617
  Transmission Date: 20141212
  Serious: Yes (Other)
  Sender: FDA-Public Use
  Company Number: 2014SP001820

PATIENT
  Sex: Male

DRUGS (4)
  1. LATUDA [Suspect]
     Indication: SCHIZOAFFECTIVE DISORDER
     Route: 048
  2. RITALIN [Concomitant]
  3. XANAX [Concomitant]
  4. INVEGA [Concomitant]

REACTIONS (1)
  - Nephrolithiasis [Unknown]
